FAERS Safety Report 6498314-7 (Version None)
Quarter: 2009Q4

REPORT INFORMATION
  Report Type: 
  Country: None (occurrence: None)
  Receive Date: 20091127
  Receipt Date: 20090520
  Transmission Date: 20100525
  Serious: Yes (Other)
  Sender: FDA-Public Use
  Company Number: 287475

PATIENT
  Age: 68 Year
  Sex: Male
  Weight: 79.4 kg

DRUGS (1)
  1. NOVOLOG [Suspect]
     Indication: DIABETES MELLITUS
     Dosage: SLIDING SCALE, SUBCUTANEOUS
     Route: 058
     Dates: start: 20060101, end: 20090401

REACTIONS (1)
  - HYPOGLYCAEMIC UNCONSCIOUSNESS [None]
